FAERS Safety Report 4826949-3 (Version None)
Quarter: 2005Q4

REPORT INFORMATION
  Report Type: 
  Country: None (occurrence: None)
  Receive Date: 20051114
  Receipt Date: 20051005
  Transmission Date: 20060501
  Serious: Yes (Other)
  Sender: FDA-Public Use
  Company Number: 200513764EU

PATIENT
  Age: 39 Year
  Sex: Female

DRUGS (5)
  1. HYDROCORTISONE [Suspect]
     Route: 042
  2. PREDNISOLONE [Concomitant]
     Indication: ASTHMA
     Route: 048
  3. BRONCHODILATORS [Concomitant]
     Indication: ASTHMA
  4. AMINOPHYLLINE [Concomitant]
     Indication: ASTHMA
     Route: 042
  5. ANTIBIOTICS [Concomitant]

REACTIONS (4)
  - ERYTHEMA [None]
  - FACE OEDEMA [None]
  - HYPERSENSITIVITY [None]
  - TACHYCARDIA [None]
